FAERS Safety Report 19421260 (Version 6)
Quarter: 2021Q3

REPORT INFORMATION
  Report Type: Report from Study
  Country: PE (occurrence: PE)
  Receive Date: 20210616
  Receipt Date: 20210819
  Transmission Date: 20211014
  Serious: Yes (Life-Threatening, Hospitalization)
  Sender: FDA-Public Use
  Company Number: PE-ROCHE-2848811

PATIENT
  Age: 96 Year
  Sex: Female
  Weight: 53 kg

DRUGS (2)
  1. PLACEBO [Suspect]
     Active Substance: UNSPECIFIED INGREDIENT
     Indication: NON-SMALL CELL LUNG CANCER
     Dosage: START DATE OF MOST RECENT DOSE OF STUDY DRUG PRIOR TO SAE 31/MAY/2021
     Route: 042
     Dates: start: 20210531
  2. ATEZOLIZUMAB. [Suspect]
     Active Substance: ATEZOLIZUMAB
     Indication: NON-SMALL CELL LUNG CANCER
     Dosage: START DATE OF MOST RECENT DOSE OF STUDY DRUG PRIOR TO AE 31/MAY/021
     Route: 042
     Dates: start: 20210531

REACTIONS (1)
  - Chest pain [Recovered/Resolved]

NARRATIVE: CASE EVENT DATE: 20210609
